FAERS Safety Report 24159681 (Version 2)
Quarter: 2024Q3

REPORT INFORMATION
  Report Type: Spontaneous
  Country: BR (occurrence: BR)
  Receive Date: 20240731
  Receipt Date: 20240920
  Transmission Date: 20241017
  Serious: Yes (Other)
  Sender: ELI LILLY AND CO
  Company Number: BR-ELI_LILLY_AND_COMPANY-BR202407012784

PATIENT
  Sex: Male

DRUGS (2)
  1. BASAGLAR [Suspect]
     Active Substance: INSULIN GLARGINE
     Indication: Diabetes mellitus
     Dosage: UNK UNK, UNKNOWN
     Route: 065
  2. MORPHINE [Concomitant]
     Active Substance: MORPHINE
     Indication: Product used for unknown indication

REACTIONS (9)
  - Gastrointestinal carcinoma [Unknown]
  - Metastases to liver [Unknown]
  - Metastases to pancreas [Unknown]
  - Metastases to spine [Unknown]
  - Metastases to bone [Unknown]
  - COVID-19 [Unknown]
  - Asthenia [Unknown]
  - Weight decreased [Unknown]
  - Ageusia [Unknown]

NARRATIVE: CASE EVENT DATE: 20180101
